FAERS Safety Report 13689793 (Version 2)
Quarter: 2017Q3

REPORT INFORMATION
  Report Type: Spontaneous
  Country: US (occurrence: US)
  Receive Date: 20170626
  Receipt Date: 20170705
  Transmission Date: 20171127
  Serious: Yes (Death, Other)
  Sender: FDA-Public Use
  Company Number: US-TESARO, INC-US-2017TSO00691

PATIENT

DRUGS (1)
  1. ZEJULA [Suspect]
     Active Substance: NIRAPARIB
     Indication: OVARIAN CANCER
     Dosage: 300 MG, QD
     Route: 048
     Dates: start: 20170530

REACTIONS (15)
  - Confusional state [Unknown]
  - Neurological symptom [Unknown]
  - White blood cell count decreased [Unknown]
  - Haemoglobin decreased [Unknown]
  - Blood creatinine increased [Unknown]
  - Platelet count decreased [Unknown]
  - Respiratory distress [Unknown]
  - Hypoaesthesia [Recovered/Resolved]
  - Muscular weakness [Not Recovered/Not Resolved]
  - Hypoxia [Unknown]
  - Granulocyte count decreased [Unknown]
  - Hallucination [Unknown]
  - Refractoriness to platelet transfusion [Fatal]
  - Limb discomfort [Recovered/Resolved]
  - Nausea [Not Recovered/Not Resolved]

NARRATIVE: CASE EVENT DATE: 201706
